FAERS Safety Report 6727392-2 (Version None)
Quarter: 2010Q2

REPORT INFORMATION
  Report Type: 
  Country: None (occurrence: None)
  Receive Date: 20100517
  Receipt Date: 20100506
  Transmission Date: 20101027
  Serious: Yes (Hospitalization)
  Sender: FDA-Public Use
  Company Number: US-BAYER-201015136BCC

PATIENT
  Age: 21 Month
  Sex: Female
  Weight: 9.525 kg

DRUGS (3)
  1. CAMPHO-PHENIQUE LIQUID [Suspect]
     Indication: ACCIDENTAL DRUG INTAKE BY CHILD
     Route: 048
     Dates: start: 20100428, end: 20100428
  2. PULMICORT [Concomitant]
     Route: 065
  3. ALBUTEROL [Concomitant]
     Route: 055

REACTIONS (4)
  - HYPERSENSITIVITY [None]
  - LIP SWELLING [None]
  - OROPHARYNGEAL BLISTERING [None]
  - URTICARIA [None]
